FAERS Safety Report 4822566-X (Version None)
Quarter: 2005Q4

REPORT INFORMATION
  Report Type: 
  Country: None (occurrence: None)
  Receive Date: 20051104
  Receipt Date: 20051020
  Transmission Date: 20060501
  Serious: Yes (Other)
  Sender: FDA-Public Use
  Company Number: 2005-0008848

PATIENT
  Sex: Female
  Weight: 58 kg

DRUGS (2)
  1. VIREAD [Suspect]
  2. REYATAZ (ATAZANVIR SULFATE) [Suspect]

REACTIONS (3)
  - MULTIPLE DRUG OVERDOSE [None]
  - SUICIDE ATTEMPT [None]
  - VOMITING [None]
